FAERS Safety Report 18828623 (Version 1)
Quarter: 2021Q1

REPORT INFORMATION
  Report Type: Spontaneous
  Country: US (occurrence: US)
  Receive Date: 20210201
  Receipt Date: 20210201
  Transmission Date: 20210419
  Serious: No
  Sender: FDA-Public Use
  Company Number: US-ABBVIE-20K-163-3537060-00

PATIENT
  Sex: Male
  Weight: 79.45 kg

DRUGS (7)
  1. OXYBUTYNIN. [Concomitant]
     Active Substance: OXYBUTYNIN CHLORIDE
     Indication: POLLAKIURIA
  2. HUMIRA [Suspect]
     Active Substance: ADALIMUMAB
     Indication: POUCHITIS
     Route: 058
     Dates: start: 202008
  3. SINGULAIR [Concomitant]
     Active Substance: MONTELUKAST SODIUM
     Indication: ASTHMA
  4. HUMIRA [Suspect]
     Active Substance: ADALIMUMAB
     Indication: RHEUMATOID ARTHRITIS
     Route: 058
     Dates: start: 202002, end: 202007
  5. AZITHROMYCIN ANHYDROUS. [Concomitant]
     Active Substance: AZITHROMYCIN ANHYDROUS
     Indication: POUCHITIS
  6. FIBER [Concomitant]
     Active Substance: PSYLLIUM HUSK
     Indication: NUTRITIONAL SUPPLEMENTATION
  7. CALCIUM [Concomitant]
     Active Substance: CALCIUM
     Indication: MINERAL SUPPLEMENTATION

REACTIONS (2)
  - Off label use [Unknown]
  - Pouchitis [Recovering/Resolving]

NARRATIVE: CASE EVENT DATE: 2020
